FAERS Safety Report 19811370 (Version 1)
Quarter: 2021Q3

REPORT INFORMATION
  Report Type: Spontaneous
  Country: FR (occurrence: FR)
  Receive Date: 20210909
  Receipt Date: 20210909
  Transmission Date: 20211014
  Serious: Yes (Other)
  Sender: FDA-Public Use
  Company Number: FR-PFIZER INC-202101121568

PATIENT
  Age: 32 Year

DRUGS (3)
  1. CYTARABINE. [Suspect]
     Active Substance: CYTARABINE
     Indication: BREAST CANCER
     Dosage: UNK
     Route: 065
  2. EPIRUBICIN HCL [Suspect]
     Active Substance: EPIRUBICIN HYDROCHLORIDE
     Indication: BREAST CANCER
     Dosage: UNK
     Route: 065
  3. PACLITAXEL. [Suspect]
     Active Substance: PACLITAXEL
     Indication: BREAST CANCER
     Dosage: 162 MG, 100MG/16.7ML
     Route: 065
     Dates: start: 20210622, end: 20210817

REACTIONS (7)
  - Capillary leak syndrome [Unknown]
  - Xeroderma [Unknown]
  - Fluid retention [Unknown]
  - Oedema [Unknown]
  - Dyspnoea exertional [Unknown]
  - Eczema [Unknown]
  - Off label use [Unknown]

NARRATIVE: CASE EVENT DATE: 20210803
